FAERS Safety Report 13492124 (Version 1)
Quarter: 2017Q2

REPORT INFORMATION
  Report Type: Spontaneous
  Country: CH (occurrence: CH)
  Receive Date: 20170427
  Receipt Date: 20170427
  Transmission Date: 20170830
  Serious: Yes (Death)
  Sender: FDA-Public Use
  Company Number: CH-ELI_LILLY_AND_COMPANY-CH201704009871

PATIENT
  Age: 61 Year
  Sex: Female
  Weight: 47.8 kg

DRUGS (9)
  1. TEMESTA                            /00273201/ [Suspect]
     Active Substance: LORAZEPAM
     Indication: SUICIDAL IDEATION
     Dosage: 0.5 MG, QID
     Route: 065
     Dates: start: 20160225, end: 20160228
  2. TEMESTA                            /00273201/ [Suspect]
     Active Substance: LORAZEPAM
     Indication: DELUSION
  3. ETHANOL W/HUMULUS LUPULUS/VALERIANA OFFICINAL [Concomitant]
     Indication: SUICIDAL IDEATION
     Dosage: 1 G, QD
     Route: 065
     Dates: start: 20160224, end: 20160227
  4. ETHANOL W/HUMULUS LUPULUS/VALERIANA OFFICINAL [Concomitant]
     Indication: DELUSION
  5. ZYPREXA [Suspect]
     Active Substance: OLANZAPINE
     Indication: SUICIDAL IDEATION
     Dosage: 2.5 MG, QD
     Route: 065
     Dates: start: 20160226, end: 20160227
  6. LACRYCON                           /02211501/ [Concomitant]
     Indication: PRODUCT USED FOR UNKNOWN INDICATION
     Dosage: UNK UNK, UNKNOWN
     Route: 065
     Dates: start: 20160228
  7. CO-AMOXI [Concomitant]
     Active Substance: AMOXICILLIN\CLAVULANATE POTASSIUM
     Indication: PRODUCT USED FOR UNKNOWN INDICATION
     Dosage: 2 G, QD
     Route: 065
     Dates: start: 20160226, end: 20160228
  8. ZYPREXA [Suspect]
     Active Substance: OLANZAPINE
     Indication: DELUSION
  9. SURMONTIL [Suspect]
     Active Substance: TRIMIPRAMINE MALEATE
     Indication: PRODUCT USED FOR UNKNOWN INDICATION
     Dosage: 10 MG, QD
     Route: 065
     Dates: start: 20160225, end: 20160226

REACTIONS (2)
  - Completed suicide [Fatal]
  - Suicidal ideation [Fatal]

NARRATIVE: CASE EVENT DATE: 201602
